FAERS Safety Report 24982677 (Version 1)
Quarter: 2025Q1

REPORT INFORMATION
  Report Type: Spontaneous
  Country: SE (occurrence: SE)
  Receive Date: 20250218
  Receipt Date: 20250218
  Transmission Date: 20250408
  Serious: Yes (Death, Other)
  Sender: NOVARTIS
  Company Number: SE-EMA-DD-20250213-7482707-075438

PATIENT
  Age: 26 Year
  Sex: Male

DRUGS (14)
  1. PREGABALIN [Interacting]
     Active Substance: PREGABALIN
     Indication: Overdose
     Route: 065
  2. CARBAMAZEPINE [Interacting]
     Active Substance: CARBAMAZEPINE
     Indication: Product used for unknown indication
     Route: 065
  3. GABAPENTIN [Interacting]
     Active Substance: GABAPENTIN
     Indication: Product used for unknown indication
     Route: 065
  4. ZOPICLONE [Suspect]
     Active Substance: ZOPICLONE
     Indication: Product used for unknown indication
     Route: 065
  5. MIRTAZAPINE [Interacting]
     Active Substance: MIRTAZAPINE
     Indication: Overdose
     Route: 065
  6. METHYLPHENIDATE HYDROCHLORIDE [Interacting]
     Active Substance: METHYLPHENIDATE HYDROCHLORIDE
     Indication: Product used for unknown indication
     Route: 065
  7. FENTANYL [Interacting]
     Active Substance: FENTANYL
     Indication: Product used for unknown indication
     Route: 065
  8. DIAZEPAM [Interacting]
     Active Substance: DIAZEPAM
     Indication: Product used for unknown indication
     Route: 065
  9. CLONAZEPAM [Interacting]
     Active Substance: CLONAZEPAM
     Indication: Product used for unknown indication
     Route: 065
  10. BUPRENORPHINE [Interacting]
     Active Substance: BUPRENORPHINE
     Indication: Overdose
     Route: 065
  11. ALPRAZOLAM [Interacting]
     Active Substance: ALPRAZOLAM
     Indication: Product used for unknown indication
     Route: 065
  12. TRIMEPRAZINE [Interacting]
     Active Substance: TRIMEPRAZINE
     Indication: Product used for unknown indication
     Route: 065
  13. DRONABINOL [Suspect]
     Active Substance: DRONABINOL
     Indication: Product used for unknown indication
     Route: 065
  14. .DELTA.8-TETRAHYDROCANNABINOL\HERBALS [Interacting]
     Active Substance: .DELTA.8-TETRAHYDROCANNABINOL\HERBALS
     Indication: Product used for unknown indication
     Route: 065

REACTIONS (5)
  - Pulmonary oedema [Fatal]
  - Brain oedema [Fatal]
  - Accidental overdose [Fatal]
  - Drug interaction [Fatal]
  - Toxicity to various agents [Fatal]
